FAERS Safety Report 16744864 (Version 1)
Quarter: 2019Q3

REPORT INFORMATION
  Report Type: Spontaneous
  Country: GB (occurrence: GB)
  Receive Date: 20190827
  Receipt Date: 20190827
  Transmission Date: 20191005
  Serious: Yes (Other)
  Sender: FDA-Public Use
  Company Number: GB-ASTRAZENECA-2019SF18119

PATIENT
  Age: 29 Year
  Sex: Female
  Weight: 70.6 kg

DRUGS (2)
  1. CITALOPRAM [Concomitant]
     Active Substance: CITALOPRAM HYDROBROMIDE
     Dates: end: 201902
  2. QUETIAPINE HEMIFUMARATE [Suspect]
     Active Substance: QUETIAPINE FUMARATE
     Indication: DEPRESSION
     Dosage: 75 MG
     Route: 048
     Dates: start: 20190124

REACTIONS (9)
  - Disturbance in sexual arousal [Not Recovered/Not Resolved]
  - Depression suicidal [Not Recovered/Not Resolved]
  - Hypertrichosis [Not Recovered/Not Resolved]
  - Perinatal depression [Unknown]
  - Sensitive skin [Not Recovered/Not Resolved]
  - Personality change [Recovered/Resolved with Sequelae]
  - Tinnitus [Not Recovered/Not Resolved]
  - Maternal exposure during pregnancy [Unknown]
  - Dry mouth [Recovering/Resolving]

NARRATIVE: CASE EVENT DATE: 20190228
